FAERS Safety Report 8525289-9 (Version None)
Quarter: 2012Q3

REPORT INFORMATION
  Report Type: 
  Country: None (occurrence: None)
  Receive Date: 20120720
  Receipt Date: 20120718
  Transmission Date: 20120928
  Serious: Yes (Other)
  Sender: FDA-Public Use
  Company Number: PHEH2012US014153

PATIENT
  Sex: Female

DRUGS (6)
  1. CELEBREX [Concomitant]
     Dosage: UNK UKN, UNK
  2. GILENYA [Suspect]
     Indication: RELAPSING-REMITTING MULTIPLE SCLEROSIS
     Dosage: 0.5 MG, QD
     Route: 048
     Dates: start: 20110601
  3. MECLIZINE [Concomitant]
     Dosage: UNK UKN, UNK
  4. METFORMIN HYDROCHLORIDE [Concomitant]
     Dosage: UNK UKN, UNK
  5. RAMIPRIL [Concomitant]
     Dosage: UNK UKN, UNK
  6. TRILEPTAL [Concomitant]
     Dosage: UNK UKN, UNK

REACTIONS (4)
  - CARDIOVASCULAR DISORDER [None]
  - CHEST DISCOMFORT [None]
  - CONDITION AGGRAVATED [None]
  - DYSPNOEA [None]
